FAERS Safety Report 9395703 (Version 2)
Quarter: 2014Q3

REPORT INFORMATION
  Report Type: Spontaneous
  Country: JP (occurrence: JP)
  Receive Date: 20130711
  Receipt Date: 20140924
  Transmission Date: 20150326
  Serious: Yes (Hospitalization)
  Sender: FDA-Public Use
  Company Number: JP-SANOFI-AVENTIS-2013SA068429

PATIENT
  Age: 90 Year
  Sex: Male

DRUGS (7)
  1. LANSOPRAZOLE. [Suspect]
     Active Substance: LANSOPRAZOLE
     Route: 065
  2. FAMOTIDINE. [Concomitant]
     Active Substance: FAMOTIDINE
  3. IMIPENEM [Concomitant]
     Active Substance: IMIPENEM
     Route: 030
  4. LINCOMYCIN [Concomitant]
     Active Substance: LINCOMYCIN
     Route: 030
  5. TIENAM [Concomitant]
     Active Substance: CILASTATIN SODIUM\IMIPENEM
     Indication: PNEUMONIA ASPIRATION
     Route: 030
  6. CLOPIDOGREL BISULFATE. [Suspect]
     Active Substance: CLOPIDOGREL BISULFATE
     Indication: PRODUCT USED FOR UNKNOWN INDICATION
     Route: 048
  7. ASPIRIN. [Suspect]
     Active Substance: ASPIRIN
     Route: 065

REACTIONS (9)
  - Muscle haemorrhage [Recovered/Resolved]
  - Acquired haemophilia [Recovered/Resolved]
  - Subcutaneous haematoma [Recovered/Resolved]
  - Activated partial thromboplastin time prolonged [Recovered/Resolved]
  - Factor VIII inhibition [Recovered/Resolved]
  - Haemorrhage subcutaneous [Recovered/Resolved]
  - Anaemia [Recovered/Resolved]
  - Skin discolouration [Recovered/Resolved]
  - Drug eruption [Unknown]
